FAERS Safety Report 24678370 (Version 1)
Quarter: 2024Q4

REPORT INFORMATION
  Report Type: Report from Study
  Country: ZA (occurrence: ZA)
  Receive Date: 20241129
  Receipt Date: 20241129
  Transmission Date: 20250114
  Serious: Yes (Hospitalization)
  Sender: ALEXION PHARMACEUTICALS
  Company Number: ZA-AstraZeneca-CH-00755739A

PATIENT
  Age: 63 Year

DRUGS (18)
  1. DAPAGLIFLOZIN [Suspect]
     Active Substance: DAPAGLIFLOZIN
     Indication: Diabetes mellitus
  2. DAPAGLIFLOZIN [Suspect]
     Active Substance: DAPAGLIFLOZIN
  3. DAPAGLIFLOZIN [Suspect]
     Active Substance: DAPAGLIFLOZIN
  4. DAPAGLIFLOZIN [Suspect]
     Active Substance: DAPAGLIFLOZIN
  5. Dynacaz [Concomitant]
     Indication: Diabetes mellitus
  6. Dynacaz [Concomitant]
  7. ATORVASTATIN [Concomitant]
     Active Substance: ATORVASTATIN
     Indication: Blood cholesterol
  8. ATORVASTATIN [Concomitant]
     Active Substance: ATORVASTATIN
  9. ALPHAGAN P [Concomitant]
     Active Substance: BRIMONIDINE TARTRATE
     Indication: Glaucoma
  10. BIMATOPROST\TIMOLOL [Concomitant]
     Active Substance: BIMATOPROST\TIMOLOL
  11. ALLOPURINOL [Concomitant]
     Active Substance: ALLOPURINOL
  12. ALLOPURINOL [Concomitant]
     Active Substance: ALLOPURINOL
  13. LOSARTAN POTASSIUM [Concomitant]
     Active Substance: LOSARTAN POTASSIUM
     Indication: Hypertension
  14. LOSARTAN POTASSIUM [Concomitant]
     Active Substance: LOSARTAN POTASSIUM
  15. PREGABALIN [Concomitant]
     Active Substance: PREGABALIN
     Indication: Epilepsy
  16. PREGABALIN [Concomitant]
     Active Substance: PREGABALIN
  17. Diagen [Concomitant]
     Indication: Diabetes mellitus
  18. Diagen [Concomitant]

REACTIONS (1)
  - Ulcer [Unknown]
